FAERS Safety Report 24822808 (Version 2)
Quarter: 2025Q1

REPORT INFORMATION
  Report Type: Spontaneous
  Country: US (occurrence: US)
  Receive Date: 20250109
  Receipt Date: 20250123
  Transmission Date: 20250409
  Serious: No
  Sender: HETERO
  Company Number: US-HETERO-HET2024US05152

PATIENT
  Sex: Male
  Weight: 99.773 kg

DRUGS (1)
  1. LEVOFLOXACIN [Suspect]
     Active Substance: LEVOFLOXACIN
     Indication: Pneumonia
     Route: 048
     Dates: start: 20241230, end: 20241230

REACTIONS (1)
  - Vomiting [Not Recovered/Not Resolved]
